FAERS Safety Report 9749255 (Version 2)
Quarter: 2013Q4

REPORT INFORMATION
  Report Type: Spontaneous
  Country: US (occurrence: US)
  Receive Date: 20131212
  Receipt Date: 20131212
  Transmission Date: 20140711
  Serious: No
  Sender: FDA-Public Use
  Company Number: US-INCYTE CORPORATION-2013IN002412

PATIENT
  Age: 92 Year
  Sex: Female

DRUGS (1)
  1. JAKAFI [Suspect]
     Indication: POLYCYTHAEMIA VERA
     Dosage: 5 MG, BID
     Route: 048
     Dates: start: 201301

REACTIONS (9)
  - Tooth infection [Unknown]
  - Toothache [Unknown]
  - Macular degeneration [Unknown]
  - Hearing impaired [Unknown]
  - Memory impairment [Unknown]
  - Visual acuity reduced [Unknown]
  - Loose tooth [Unknown]
  - Abdominal distension [Unknown]
  - Drug ineffective [None]
